FAERS Safety Report 20162747 (Version 6)
Quarter: 2022Q3

REPORT INFORMATION
  Report Type: Report from Study
  Country: KR (occurrence: KR)
  Receive Date: 20211209
  Receipt Date: 20220818
  Transmission Date: 20221027
  Serious: Yes (Hospitalization)
  Sender: FDA-Public Use
  Company Number: KR-ABBVIE-21K-090-4189683-00

PATIENT
  Age: 59 Year
  Sex: Male
  Weight: 57 kg

DRUGS (13)
  1. SKYRIZI [Suspect]
     Active Substance: RISANKIZUMAB-RZAA
     Indication: Psoriasis
     Dosage: ONCE
     Route: 058
     Dates: start: 20210512, end: 20210512
  2. SKYRIZI [Suspect]
     Active Substance: RISANKIZUMAB-RZAA
     Dosage: ONCE
     Route: 058
     Dates: start: 20210609, end: 20210609
  3. SKYRIZI [Suspect]
     Active Substance: RISANKIZUMAB-RZAA
     Dosage: ONCE
     Route: 058
     Dates: start: 20210901, end: 20210901
  4. SKYRIZI [Suspect]
     Active Substance: RISANKIZUMAB-RZAA
     Dosage: ONCE
     Route: 058
     Dates: start: 20211206, end: 20211206
  5. SKYRIZI [Suspect]
     Active Substance: RISANKIZUMAB-RZAA
     Dosage: ONCE
     Route: 058
     Dates: start: 20220302, end: 20220302
  6. SKYRIZI [Suspect]
     Active Substance: RISANKIZUMAB-RZAA
     Dosage: ONCE
     Route: 058
     Dates: start: 20220701, end: 20220701
  7. AZELASTINE HYDROCHLORIDE [Concomitant]
     Active Substance: AZELASTINE HYDROCHLORIDE
     Indication: Psoriasis
     Route: 048
     Dates: start: 20190219
  8. L-TIRIZINE [Concomitant]
     Indication: Psoriasis
     Route: 048
     Dates: start: 20190219
  9. RIFAMPIN [Concomitant]
     Active Substance: RIFAMPIN
     Indication: Latent tuberculosis
     Route: 048
     Dates: start: 20210416, end: 20210813
  10. RIFAMPIN [Concomitant]
     Active Substance: RIFAMPIN
     Route: 048
     Dates: start: 20210901, end: 20211001
  11. ESPERSON [Concomitant]
     Indication: Psoriasis
     Dosage: LOTION
     Route: 062
     Dates: start: 20160412
  12. TOPISOL MILK LOTION [Concomitant]
     Indication: Psoriasis
     Route: 062
     Dates: start: 20190305
  13. NOBIPROX [Concomitant]
     Indication: Psoriasis
     Dosage: SHAMPOO
     Route: 065
     Dates: start: 20220302

REACTIONS (1)
  - Lumbar vertebral fracture [Recovered/Resolved]

NARRATIVE: CASE EVENT DATE: 20211021
